FAERS Safety Report 15990656 (Version 1)
Quarter: 2019Q1

REPORT INFORMATION
  Report Type: Spontaneous
  Country: DE (occurrence: DE)
  Receive Date: 20190221
  Receipt Date: 20190221
  Transmission Date: 20190418
  Serious: Yes (Other)
  Sender: FDA-Public Use
  Company Number: PHHY2019DE039708

PATIENT
  Sex: Male

DRUGS (2)
  1. LAMOTRIGINE. [Concomitant]
     Active Substance: LAMOTRIGINE
     Indication: EPILEPSY
     Route: 065
  2. LEVETIRACETAM. [Suspect]
     Active Substance: LEVETIRACETAM
     Indication: EPILEPSY
     Dosage: 3000 MG, UNK
     Route: 065

REACTIONS (5)
  - Humerus fracture [Recovered/Resolved]
  - Ventricular extrasystoles [Not Recovered/Not Resolved]
  - Sarcoidosis [Not Recovered/Not Resolved]
  - Spinal fracture [Recovered/Resolved]
  - Sleep apnoea syndrome [Not Recovered/Not Resolved]

NARRATIVE: CASE EVENT DATE: 201402
